FAERS Safety Report 9424110 (Version 1)
Quarter: 2013Q3

REPORT INFORMATION
  Report Type: Spontaneous
  Country: IN (occurrence: IN)
  Receive Date: 20130729
  Receipt Date: 20130729
  Transmission Date: 20140515
  Serious: Yes (Death)
  Sender: FDA-Public Use
  Company Number: IN-ROCHE-1253690

PATIENT
  Sex: Female

DRUGS (2)
  1. METALYSE [Suspect]
     Indication: PRODUCT USED FOR UNKNOWN INDICATION
     Route: 042
     Dates: start: 20130713, end: 20130713
  2. HEPARIN [Concomitant]

REACTIONS (2)
  - Bradycardia [Fatal]
  - Convulsion [Fatal]
